FAERS Safety Report 13565895 (Version 9)
Quarter: 2019Q4

REPORT INFORMATION
  Report Type: Other
  Country: GB (occurrence: GB)
  Receive Date: 20170520
  Receipt Date: 20191003
  Transmission Date: 20200122
  Serious: Yes (Other)
  Sender: FDA-Public Use
  Company Number: GB-MACLEODS PHARMACEUTICALS US LTD-MAC2017005022

PATIENT

DRUGS (41)
  1. FABRAZYME [Suspect]
     Active Substance: AGALSIDASE BETA
     Dosage: POWDER FOR SOLUTION FOR INFUSION
     Route: 041
  2. FABRAZYME [Suspect]
     Active Substance: AGALSIDASE BETA
     Dosage: 50 MILLIGRAM, (QOW), POWDER FOR SOLUTION FOR INFUSION
     Route: 041
  3. FABRAZYME [Suspect]
     Active Substance: AGALSIDASE BETA
     Dosage: UNK, POWDER FOR SOLUTION FOR INFUSION
  4. COLECALCIFEROL [Suspect]
     Active Substance: CHOLECALCIFEROL
     Indication: PRODUCT USED FOR UNKNOWN INDICATION
     Dosage: 800 UNIT, QD, FULTIUM-D3
     Route: 048
  5. CLOPIDOGREL [Suspect]
     Active Substance: CLOPIDOGREL BISULFATE
     Indication: PRODUCT USED FOR UNKNOWN INDICATION
     Dosage: 75 MILLIGRAM, QD, 1X/DAY
     Route: 048
  6. CITALOPRAM [Suspect]
     Active Substance: CITALOPRAM HYDROBROMIDE
     Indication: PRODUCT USED FOR UNKNOWN INDICATION
     Dosage: 10 MG, QD
     Route: 048
  7. FABRAZYME [Suspect]
     Active Substance: AGALSIDASE BETA
     Dosage: 50 MILLIGRAM
     Route: 041
  8. FABRAZYME [Suspect]
     Active Substance: AGALSIDASE BETA
     Dosage: UNK, POWDER FOR SOLUTION FOR INFUSION
     Route: 041
  9. FABRAZYME [Suspect]
     Active Substance: AGALSIDASE BETA
     Dosage: UNK, POWDER FOR SOLUTION FOR INFUSION,
     Route: 041
  10. FABRAZYME [Suspect]
     Active Substance: AGALSIDASE BETA
     Dosage: UNK,POWDER FOR SOLUTION FOR INFUSION
     Route: 041
  11. FABRAZYME [Suspect]
     Active Substance: AGALSIDASE BETA
     Dosage: UNK, POWDER FOR SOLUTION FOR INFUSION
     Route: 041
  12. FABRAZYME [Suspect]
     Active Substance: AGALSIDASE BETA
     Dosage: 50 MILLIGRAM, QD, POWDER FOR SOLUTION FOR INFUSION
     Route: 041
  13. FULTIUM-D3 [Suspect]
     Active Substance: CHOLECALCIFEROL
     Indication: PRODUCT USED FOR UNKNOWN INDICATION
     Dosage: 800 IU, QD
     Route: 048
  14. LANSOPRAZOLE. [Suspect]
     Active Substance: LANSOPRAZOLE
     Indication: PRODUCT USED FOR UNKNOWN INDICATION
     Dosage: 30 MG, QD
     Route: 048
  15. LYRICA [Suspect]
     Active Substance: PREGABALIN
     Indication: PRODUCT USED FOR UNKNOWN INDICATION
     Dosage: 75 MG, BID (150 QD)
     Route: 048
  16. SALBUTAMOL SULFATE [Suspect]
     Active Substance: ALBUTEROL SULFATE
     Dosage: EVERY 2 PUFF
     Route: 055
  17. FABRAZYME [Suspect]
     Active Substance: AGALSIDASE BETA
     Dosage: UNK, POWER FOR SOLUTION FOR INFUSION
     Route: 041
  18. FABRAZYME [Suspect]
     Active Substance: AGALSIDASE BETA
     Dosage: 50 MILLIGRAM, (QOD), POWDER FOR SOLUTION FOR INFUSION, EVERY OTHER WEEK (FORTNIGHTLY)
  19. SALBUTAMOL SULFATE [Suspect]
     Active Substance: ALBUTEROL SULFATE
     Indication: PRODUCT USED FOR UNKNOWN INDICATION
     Dosage: 2 DOSAGE FORM
     Route: 055
  20. COLECALCIFEROL [Suspect]
     Active Substance: CHOLECALCIFEROL
     Dosage: 800 INTERNATIONAL UNIT, QD
     Route: 048
  21. FABRAZYME [Suspect]
     Active Substance: AGALSIDASE BETA
     Dosage: 50 MILLIGRAM, QD, POWDER FOR SOLUTION FOR INFUSION
     Route: 041
  22. FABRAZYME [Suspect]
     Active Substance: AGALSIDASE BETA
     Dosage: 50 MG, EV 2 WEEKS (QOW), POWDER AND SOLVENT FOR SOLUTION FOR INFUSION 50MG (GIVEN AS 35MG + 15MG), F
     Route: 041
  23. PERINDOPRIL [Suspect]
     Active Substance: PERINDOPRIL
     Indication: PRODUCT USED FOR UNKNOWN INDICATION
     Dosage: 4 MILLIGRAM, QD, 1X/DAY
     Route: 048
  24. NEBIVOLOL 2.5 MG TABLET [Suspect]
     Active Substance: NEBIVOLOL
     Indication: BLOOD PRESSURE ABNORMAL
     Dosage: 2.5 MILLIGRAM, QD, 1X/DAY
     Route: 048
  25. ASPIRIN. [Suspect]
     Active Substance: ASPIRIN
     Indication: PRODUCT USED FOR UNKNOWN INDICATION
     Dosage: 75 MILLIGRAM, QD, 1X/DAY
     Route: 065
  26. AMIODARONE [Suspect]
     Active Substance: AMIODARONE
     Indication: PRODUCT USED FOR UNKNOWN INDICATION
     Dosage: 200 MILLIGRAM, QD, 1X/DAY
     Route: 065
  27. FABRAZYME [Suspect]
     Active Substance: AGALSIDASE BETA
     Dosage: 50 MILLIGRAM, POWDER FOR SOLUTION FOR INFUSION, 50 MG, EVERY 2WEEK (FORTNIGHTLY),AT A DOSE OF 50MG
     Route: 041
     Dates: start: 20170206
  28. FABRAZYME [Suspect]
     Active Substance: AGALSIDASE BETA
     Dosage: UNK, POWDER FOR SOLUTION FOR INFUSION
     Route: 041
  29. SALBUTAMOL SULFATE [Suspect]
     Active Substance: ALBUTEROL SULFATE
     Indication: COUGH
     Dosage: 2 DF, QD, 1/DAY, (2 PUFF ONCE DAILY)
     Route: 055
  30. SALBUTAMOL SULFATE [Suspect]
     Active Substance: ALBUTEROL SULFATE
     Dosage: UNK
  31. CODEINE [Suspect]
     Active Substance: CODEINE
     Indication: PRODUCT USED FOR UNKNOWN INDICATION
     Dosage: 16 DOSAGE FORM, QD, 4X/DAY
     Route: 048
  32. CODEINE [Suspect]
     Active Substance: CODEINE
     Dosage: 4 DF, QD (4X/DAY (QID))
     Route: 048
  33. FABRAZYME [Suspect]
     Active Substance: AGALSIDASE BETA
     Indication: PRODUCT USED FOR UNKNOWN INDICATION
     Dosage: 50 MG, ONCE IN 2 WEEK, POWDER AND SOLVENT
     Route: 041
  34. FABRAZYME [Suspect]
     Active Substance: AGALSIDASE BETA
     Dosage: UNK, POWDER FOR SOLUTION FOR INFUSION
     Route: 041
     Dates: start: 20170220
  35. FABRAZYME [Suspect]
     Active Substance: AGALSIDASE BETA
     Dosage: 50 MG, FOR 2 WEEKS, POWDER
     Route: 041
  36. FABRAZYME [Suspect]
     Active Substance: AGALSIDASE BETA
     Dosage: 50 MILLIGRAM, POWDER FOR SOLUTION FOR INFUSION, 50 MG
     Route: 041
  37. FABRAZYME [Suspect]
     Active Substance: AGALSIDASE BETA
     Dosage: 50 MILLIGRAM, (QOW), POWDER FOR SOLUTION FOR INFUSION
     Route: 041
  38. FABRAZYME [Suspect]
     Active Substance: AGALSIDASE BETA
     Dosage: 50 MG, EV 2 WEEKS (QOW), POWDER AND SOLVENT FOR SOLUTION FOR INFUSION, 50MG (GIVEN AS 35MG + 15MG),
     Route: 041
  39. FABRAZYME [Suspect]
     Active Substance: AGALSIDASE BETA
     Dosage: UNK, POWDER FOR SOLUTION FOR INFUSION
     Route: 065
  40. CODEINE PHOSPHATE/ PARACETAMOL [Suspect]
     Active Substance: ACETAMINOPHEN\CODEINE PHOSPHATE
     Indication: PRODUCT USED FOR UNKNOWN INDICATION
     Dosage: 4 DF, FOUR TIMES DAILY
     Route: 048
  41. CODEINE PHOSPHATE/ PARACETAMOL [Suspect]
     Active Substance: ACETAMINOPHEN\CODEINE PHOSPHATE
     Dosage: 1 DOSAGE FORM, QD ( (30/500MG, 4*/DAY (QID )UNK
     Route: 048

REACTIONS (3)
  - Wheezing [Unknown]
  - Lower respiratory tract infection [Unknown]
  - Productive cough [Recovered/Resolved]
